FAERS Safety Report 5659023-7 (Version None)
Quarter: 2008Q1

REPORT INFORMATION
  Report Type: 
  Country: None (occurrence: None)
  Receive Date: 20080310
  Receipt Date: 20070521
  Transmission Date: 20080703
  Serious: No
  Sender: FDA-Public Use
  Company Number: US-BAYER-200711627BCC

PATIENT
  Age: 86 Year
  Sex: Female
  Weight: 68 kg

DRUGS (6)
  1. ALEVE [Suspect]
     Indication: ARTHRALGIA
     Dosage: TOTAL DAILY DOSE: 220 MG  UNIT DOSE: 220 MG
     Route: 048
     Dates: start: 20070501, end: 20070520
  2. ALEVE [Suspect]
     Dosage: TOTAL DAILY DOSE: 220 MG  UNIT DOSE: 220 MG
     Route: 048
  3. TOPROL [Concomitant]
  4. AVALIDE [Concomitant]
  5. SYNTHROID [Concomitant]
  6. ENABLEX [Concomitant]

REACTIONS (1)
  - HYPERTENSION [None]
